FAERS Safety Report 6572329-2 (Version None)
Quarter: 2010Q1

REPORT INFORMATION
  Report Type: 
  Country: None (occurrence: None)
  Receive Date: 20100205
  Receipt Date: 20100128
  Transmission Date: 20100710
  Serious: Yes (Hospitalization)
  Sender: FDA-Public Use
  Company Number: US-SANOFI-AVENTIS-2010SA004313

PATIENT
  Age: 89 Year
  Sex: Male

DRUGS (10)
  1. MULTAQ [Suspect]
     Route: 048
  2. COUMADIN [Concomitant]
  3. NIACIN [Concomitant]
  4. PROSCAR [Concomitant]
  5. ZOCOR [Concomitant]
  6. ASPIRIN [Concomitant]
  7. LOVAZA [Concomitant]
  8. CALCIUM [Concomitant]
  9. METOPROLOL TARTRATE [Concomitant]
     Route: 048
  10. LISINOPRIL AND HYDROCHLOROTHIAZIDE [Concomitant]

REACTIONS (6)
  - BRAIN NATRIURETIC PEPTIDE INCREASED [None]
  - CARDIAC FAILURE [None]
  - DYSPNOEA [None]
  - MALAISE [None]
  - OEDEMA PERIPHERAL [None]
  - RALES [None]
